FAERS Safety Report 7035398-1 (Version None)
Quarter: 2010Q4

REPORT INFORMATION
  Report Type: 
  Country: None (occurrence: None)
  Receive Date: 20101008
  Receipt Date: 20100921
  Transmission Date: 20110411
  Serious: Yes (Other)
  Sender: FDA-Public Use
  Company Number: PHHY2010BR65921

PATIENT
  Age: 59 Year
  Sex: Male
  Weight: 83 kg

DRUGS (7)
  1. APRESOLINE [Suspect]
     Dosage: 200 MG PER DAY
  2. HYDROCHLOROTHIAZIDE [Suspect]
     Dosage: 25 MG PERD AY
  3. CARBAMAZEPINE [Suspect]
     Dosage: 400 MG PER DAY
  4. CLONIDINE [Concomitant]
     Dosage: 0.200 MG PER DAY
  5. ENALAPRIL MALEATE [Concomitant]
     Dosage: 40 MG PER DAY
  6. SIMVASTATIN [Concomitant]
     Dosage: 20 MG PER DAY
  7. HIDANTAL [Concomitant]
     Dosage: 200 MG PER DAY

REACTIONS (12)
  - CARDIAC MURMUR [None]
  - CAROTID ARTERY OCCLUSION [None]
  - CYANOSIS [None]
  - DRY MOUTH [None]
  - FATIGUE [None]
  - FLUSHING [None]
  - HYPERTENSION [None]
  - LEFT VENTRICULAR HYPERTROPHY [None]
  - MICROALBUMINURIA [None]
  - RETINOPATHY HYPERTENSIVE [None]
  - SINUS BRADYCARDIA [None]
  - SOMNOLENCE [None]
